FAERS Safety Report 13505098 (Version 1)
Quarter: 2017Q2

REPORT INFORMATION
  Report Type: Spontaneous
  Country: US (occurrence: US)
  Receive Date: 20170502
  Receipt Date: 20170502
  Transmission Date: 20170830
  Serious: No
  Sender: FDA-Public Use
  Company Number: US-ASTRAZENECA-2016SE43435

PATIENT
  Age: 25396 Day
  Sex: Male
  Weight: 99.8 kg

DRUGS (14)
  1. BYDUREON [Suspect]
     Active Substance: EXENATIDE
     Indication: TYPE 2 DIABETES MELLITUS
     Route: 058
     Dates: start: 20160413
  2. LISINOPRIL. [Concomitant]
     Active Substance: LISINOPRIL
     Indication: RENAL DISORDER
     Route: 048
  3. AMLODIPINE [Concomitant]
     Active Substance: AMLODIPINE BESYLATE
     Indication: BLOOD PRESSURE ABNORMAL
     Route: 048
     Dates: start: 201601
  4. CLONIDINE. [Concomitant]
     Active Substance: CLONIDINE
     Route: 048
  5. POTASSIUM [Concomitant]
     Active Substance: POTASSIUM
     Indication: RENAL DISORDER
     Route: 048
  6. EPLERENONE. [Concomitant]
     Active Substance: EPLERENONE
     Indication: RENAL DISORDER
     Route: 048
  7. CALCITRIOL. [Concomitant]
     Active Substance: CALCITRIOL
     Indication: RENAL DISORDER
     Route: 048
  8. LISINOPRIL. [Concomitant]
     Active Substance: LISINOPRIL
     Indication: BLOOD PRESSURE ABNORMAL
     Route: 048
  9. ATENOLOL. [Concomitant]
     Active Substance: ATENOLOL
     Indication: BLOOD PRESSURE ABNORMAL
     Route: 048
  10. TERAZOSIN [Concomitant]
     Active Substance: TERAZOSIN\TERAZOSIN HYDROCHLORIDE
     Indication: BLOOD PRESSURE ABNORMAL
     Route: 048
  11. BABY ASPIRIN [Concomitant]
     Active Substance: ASPIRIN
     Route: 048
  12. MULTIVITAMIN [Concomitant]
     Active Substance: VITAMINS
     Dosage: DAILY
     Route: 048
  13. ATORVASTATIN [Concomitant]
     Active Substance: ATORVASTATIN
     Indication: BLOOD CHOLESTEROL ABNORMAL
     Route: 048
  14. MAGNESIUM [Concomitant]
     Active Substance: MAGNESIUM
     Route: 048

REACTIONS (1)
  - Injection site nodule [Unknown]

NARRATIVE: CASE EVENT DATE: 20160420
